FAERS Safety Report 15651757 (Version 1)
Quarter: 2018Q4

REPORT INFORMATION
  Report Type: Report from Study
  Country: DE (occurrence: DE)
  Receive Date: 20181123
  Receipt Date: 20181123
  Transmission Date: 20190205
  Serious: Yes (Other)
  Sender: FDA-Public Use
  Company Number: PHHY2018DE160766

PATIENT
  Sex: Male

DRUGS (1)
  1. OMNITROPE [Suspect]
     Active Substance: SOMATROPIN
     Indication: X-LINKED CHROMOSOMAL DISORDER
     Dosage: 1.8 MG, QD (10 MG/1.5 ML )
     Route: 058
     Dates: start: 20100909, end: 201701

REACTIONS (2)
  - Idiopathic intracranial hypertension [Not Recovered/Not Resolved]
  - Headache [Not Recovered/Not Resolved]
